FAERS Safety Report 4459583-8 (Version None)
Quarter: 2004Q3

REPORT INFORMATION
  Report Type: 
  Country: None (occurrence: None)
  Receive Date: 20040927
  Receipt Date: 20040615
  Transmission Date: 20050211
  Serious: Yes (Other)
  Sender: FDA-Public Use
  Company Number: PHEH2004US06538

PATIENT
  Age: 58 Year
  Sex: Male

DRUGS (3)
  1. ZOMETA [Suspect]
     Indication: MULTIPLE MYELOMA
     Dosage: 4 MG MONTHLY
     Route: 042
     Dates: start: 20020101, end: 20040701
  2. REVEMID [Concomitant]
     Indication: MULTIPLE MYELOMA
  3. DECADRON [Concomitant]
     Indication: MULTIPLE MYELOMA
     Dosage: UNK, QMO

REACTIONS (4)
  - BACK PAIN [None]
  - BONE DISORDER [None]
  - BONE PAIN [None]
  - COMPRESSION FRACTURE [None]
